FAERS Safety Report 12492602 (Version 2)
Quarter: 2016Q4

REPORT INFORMATION
  Report Type: Spontaneous
  Country: US (occurrence: US)
  Receive Date: 20160623
  Receipt Date: 20161116
  Transmission Date: 20170207
  Serious: No
  Sender: FDA-Public Use
  Company Number: US-GLAXOSMITHKLINE-US2016088386

PATIENT
  Age: 88 Year
  Sex: Female

DRUGS (2)
  1. VOLTAREN [Suspect]
     Active Substance: DICLOFENAC SODIUM
     Indication: RASH PRURITIC
     Dosage: UNK
  2. CORTIZONE 10 CREAM [Concomitant]
     Indication: RASH PRURITIC
     Dosage: UNK

REACTIONS (3)
  - Therapeutic response unexpected [Unknown]
  - Drug administered at inappropriate site [Unknown]
  - Product use issue [Unknown]
